FAERS Safety Report 5248061-4 (Version None)
Quarter: 2007Q1

REPORT INFORMATION
  Report Type: 
  Country: None (occurrence: None)
  Receive Date: 20070222
  Receipt Date: 20070208
  Transmission Date: 20070707
  Serious: Yes (Other)
  Sender: FDA-Public Use
  Company Number: 8021945

PATIENT
  Age: 14 Year
  Sex: Female

DRUGS (1)
  1. KEPPRA [Suspect]
     Indication: EPILEPSY
     Dosage: 750 MG/D PO
     Route: 048
     Dates: start: 20061107, end: 20061228

REACTIONS (2)
  - ALOPECIA [None]
  - NEUTROPENIA [None]
